FAERS Safety Report 23696624 (Version 1)
Quarter: 2024Q2

REPORT INFORMATION
  Report Type: Spontaneous
  Country: US (occurrence: None)
  Receive Date: 20240401
  Receipt Date: 20240401
  Transmission Date: 20240716
  Serious: No
  Sender: FDA-Public Use
  Company Number: None

PATIENT
  Age: 66 Year
  Sex: Female
  Weight: 95.9 kg

DRUGS (1)
  1. BREYANZI [Suspect]
     Active Substance: LISOCABTAGENE MARALEUCEL
     Indication: Diffuse large B-cell lymphoma
     Dates: start: 20240306

REACTIONS (11)
  - Immune effector cell-associated neurotoxicity syndrome [None]
  - Cytokine release syndrome [None]
  - Mental status changes [None]
  - Electroencephalogram abnormal [None]
  - Seizure [None]
  - Cerebrovascular accident [None]
  - Unresponsive to stimuli [None]
  - Acute respiratory failure [None]
  - Cerebral haemorrhage [None]
  - Cerebral mass effect [None]
  - Brain herniation [None]

NARRATIVE: CASE EVENT DATE: 20240326
